FAERS Safety Report 6285617-4 (Version None)
Quarter: 2009Q3

REPORT INFORMATION
  Report Type: 
  Country: None (occurrence: None)
  Receive Date: 20090724
  Receipt Date: 20090717
  Transmission Date: 20100115
  Serious: Yes (Other)
  Sender: FDA-Public Use
  Company Number: CHPA2009US15515

PATIENT
  Age: 51 Year
  Sex: Female
  Weight: 97.9 kg

DRUGS (5)
  1. BENEFIBER W/ WHEAT DEXTRIN (WHEAT DEXTRIN) POWDER [Suspect]
     Indication: NUTRITIONAL SUPPORT
     Dosage: 2 TSP, TID, ORAL
     Route: 048
     Dates: end: 20090717
  2. CYMBALTA [Concomitant]
  3. CLONOPIN [Concomitant]
  4. ADDERALL 10 [Concomitant]
  5. BENAZEPRIL HYDROCHLORIDE [Concomitant]

REACTIONS (8)
  - ABDOMINAL DISTENSION [None]
  - ABDOMINAL PAIN [None]
  - CONSTIPATION [None]
  - DIVERTICULUM [None]
  - FAECES HARD [None]
  - IRRITABLE BOWEL SYNDROME [None]
  - URINARY TRACT INFECTION [None]
  - WEIGHT INCREASED [None]
